FAERS Safety Report 17525511 (Version 1)
Quarter: 2020Q1

REPORT INFORMATION
  Report Type: Spontaneous
  Country: US (occurrence: US)
  Receive Date: 20200311
  Receipt Date: 20200311
  Transmission Date: 20200409
  Serious: No
  Sender: FDA-Public Use
  Company Number: US-AMGEN-USASP2020039000

PATIENT
  Age: 67 Year
  Sex: Male

DRUGS (2)
  1. IMLYGIC [Suspect]
     Active Substance: TALIMOGENE LAHERPAREPVEC
     Dosage: 1 MILLILITER (1 ML OF IMLYGIC 10^6)
     Route: 065
     Dates: start: 2020, end: 20200204
  2. IMLYGIC [Suspect]
     Active Substance: TALIMOGENE LAHERPAREPVEC
     Indication: MALIGNANT MELANOMA
     Dosage: 1 MILLILITER (1 ML OF IMLYGIC 10^6)
     Route: 065
     Dates: start: 20200103, end: 20200103

REACTIONS (1)
  - Disease progression [Unknown]

NARRATIVE: CASE EVENT DATE: 202002
